FAERS Safety Report 4416500-4 (Version None)
Quarter: 2004Q2

REPORT INFORMATION
  Report Type: 
  Country: None (occurrence: None)
  Receive Date: 20040630
  Receipt Date: 20040517
  Transmission Date: 20050107
  Serious: Yes (Hospitalization)
  Sender: FDA-Public Use
  Company Number: 04P-163-0251587-00

PATIENT
  Age: 57 Year
  Sex: Female

DRUGS (8)
  1. HUMIRA [Suspect]
     Indication: RHEUMATOID ARTHRITIS
     Dosage: 40 MG, 2 IN 1 WK, SUBCUTANEOUS
     Route: 058
     Dates: start: 20031201, end: 20040101
  2. METOPROLOL SUCCINATE [Concomitant]
  3. CANDESARTAN CILEXETIL [Concomitant]
  4. LEVOTHYROXINE SODIUM [Concomitant]
  5. PROTON INHIBITORS [Concomitant]
  6. PREDNISONE [Concomitant]
  7. OMEPRAZOLE [Concomitant]
  8. ROFECOXIB [Concomitant]

REACTIONS (1)
  - TUBERCULOSIS [None]
